FAERS Safety Report 8189509-5 (Version None)
Quarter: 2012Q1

REPORT INFORMATION
  Report Type: 
  Country: None (occurrence: None)
  Receive Date: 20120307
  Receipt Date: 20120229
  Transmission Date: 20120608
  Serious: No
  Sender: FDA-Public Use
  Company Number: US-PFIZER INC-2012054193

PATIENT
  Age: 59 Year
  Sex: Female

DRUGS (5)
  1. LEVOTHYROXINE SODIUM [Concomitant]
     Dosage: UNK
  2. XALATAN [Suspect]
     Dosage: UNK
  3. LUMIGAN [Suspect]
     Dosage: 1 DROP TO EACH EYE EVERY EVENING
     Dates: start: 20111125
  4. TRAVATAN [Suspect]
     Dosage: UNK
     Dates: start: 20090101
  5. AZOPT [Suspect]
     Dosage: UNK

REACTIONS (1)
  - DIARRHOEA [None]
